FAERS Safety Report 17323010 (Version 1)
Quarter: 2020Q1

REPORT INFORMATION
  Report Type: Report from Study
  Country: CO (occurrence: CO)
  Receive Date: 20200127
  Receipt Date: 20200127
  Transmission Date: 20200409
  Serious: Yes (Hospitalization)
  Sender: FDA-Public Use
  Company Number: CO-ROCHE-2462476

PATIENT
  Sex: Male

DRUGS (1)
  1. CELLCEPT [Suspect]
     Active Substance: MYCOPHENOLATE MOFETIL\MYCOPHENOLATE MOFETIL HYDROCHLORIDE
     Indication: PRODUCT USED FOR UNKNOWN INDICATION
     Dosage: TWO EVERY TWELVE HOURS
     Route: 048

REACTIONS (5)
  - Feeling abnormal [Unknown]
  - Stenosis [Unknown]
  - Angioplasty [Unknown]
  - Apparent death [Unknown]
  - General physical health deterioration [Unknown]
